FAERS Safety Report 23707963 (Version 1)
Quarter: 2024Q2

REPORT INFORMATION
  Report Type: Report from Study
  Country: US (occurrence: US)
  Receive Date: 20240404
  Receipt Date: 20240404
  Transmission Date: 20240716
  Serious: Yes (Other)
  Sender: FDA-Public Use
  Company Number: US-GILEAD-2023-0654030

PATIENT
  Age: 68 Year
  Sex: Female
  Weight: 71.202 kg

DRUGS (3)
  1. SACITUZUMAB GOVITECAN-HZIY [Suspect]
     Active Substance: SACITUZUMAB GOVITECAN-HZIY
     Indication: Intraductal proliferative breast lesion
     Dosage: 700 MG, INTRAVENOUSLY OVER 1 HOUR ON DAYS 1 AND 8 EVERY 21 DAYS
     Route: 042
     Dates: start: 20231031
  2. SACITUZUMAB GOVITECAN-HZIY [Suspect]
     Active Substance: SACITUZUMAB GOVITECAN-HZIY
     Dosage: 700 MG, INTRAVENOUSLY OVER 1 HOUR ON DAYS 1 AND 8 EVERY 21 DAYS
     Route: 042
     Dates: start: 20231101
  3. SACITUZUMAB GOVITECAN-HZIY [Suspect]
     Active Substance: SACITUZUMAB GOVITECAN-HZIY
     Dosage: 700 MG, INTRAVENOUSLY OVER 1 HOUR ON DAYS 1 AND 8 EVERY 21 DAYS
     Route: 042
     Dates: start: 20231101

REACTIONS (11)
  - Pneumonia [Recovered/Resolved]
  - Gastric ulcer [Unknown]
  - Back pain [Recovered/Resolved]
  - Constipation [Not Recovered/Not Resolved]
  - Pain [Not Recovered/Not Resolved]
  - Chest pain [Recovered/Resolved]
  - Blood test abnormal [Unknown]
  - Muscle spasms [Not Recovered/Not Resolved]
  - Off label use [Not Recovered/Not Resolved]
  - Nasopharyngitis [Unknown]
  - Abdominal pain upper [Unknown]

NARRATIVE: CASE EVENT DATE: 20231031
